FAERS Safety Report 8422991-4 (Version None)
Quarter: 2012Q2

REPORT INFORMATION
  Report Type: 
  Country: None (occurrence: None)
  Receive Date: 20120608
  Receipt Date: 20120510
  Transmission Date: 20120825
  Serious: No
  Sender: FDA-Public Use
  Company Number: US-JNJFOC-20120512793

PATIENT
  Sex: Female

DRUGS (2)
  1. INVEGA SUSTENNA [Suspect]
     Indication: PRODUCT USED FOR UNKNOWN INDICATION
     Route: 030
     Dates: start: 20120401
  2. INVEGA SUSTENNA [Suspect]
     Route: 030

REACTIONS (2)
  - TREMOR [None]
  - DROOLING [None]
